FAERS Safety Report 12817472 (Version 1)
Quarter: 2016Q4

REPORT INFORMATION
  Report Type: Spontaneous
  Country: GB (occurrence: GB)
  Receive Date: 20161006
  Receipt Date: 20161006
  Transmission Date: 20170207
  Serious: Yes (Other)
  Sender: FDA-Public Use
  Company Number: GB-ROCHE-1838610

PATIENT
  Age: 42 Year
  Sex: Female
  Weight: 65 kg

DRUGS (1)
  1. XOLAIR [Suspect]
     Active Substance: OMALIZUMAB
     Indication: ASTHMA
     Route: 058
     Dates: start: 20150421, end: 20160628

REACTIONS (4)
  - Swollen tongue [Recovered/Resolved]
  - Dizziness [Unknown]
  - Mouth swelling [Recovered/Resolved]
  - Peak expiratory flow rate decreased [Unknown]

NARRATIVE: CASE EVENT DATE: 20160629
